FAERS Safety Report 25399879 (Version 1)
Quarter: 2025Q2

REPORT INFORMATION
  Report Type: Report from Study
  Country: CA (occurrence: CA)
  Receive Date: 20250605
  Receipt Date: 20250605
  Transmission Date: 20250717
  Serious: Yes (Other)
  Sender: TAKEDA
  Company Number: CA-TAKEDA-2025TUS051272

PATIENT
  Sex: Male

DRUGS (6)
  1. VEDOLIZUMAB [Suspect]
     Active Substance: VEDOLIZUMAB
     Indication: Colitis ulcerative
  2. AVASTIN [Concomitant]
     Active Substance: BEVACIZUMAB
     Dosage: UNK, Q6WEEKS
  3. IMURAN [Concomitant]
     Active Substance: AZATHIOPRINE
  4. PREDNISONE [Concomitant]
     Active Substance: PREDNISONE
  5. ATIVAN [Concomitant]
     Active Substance: LORAZEPAM
  6. CORTIFOAM [Concomitant]
     Active Substance: HYDROCORTISONE ACETATE

REACTIONS (1)
  - Prostate cancer [Not Recovered/Not Resolved]
